FAERS Safety Report 14679577 (Version 2)
Quarter: 2018Q2

REPORT INFORMATION
  Report Type: Report from Study
  Country: None (occurrence: NL)
  Receive Date: 20180326
  Receipt Date: 20180413
  Transmission Date: 20180711
  Serious: Yes (Other)
  Sender: FDA-Public Use
  Company Number: NL-ABBVIE-18S-114-2299834-00

PATIENT
  Age: 42 Year
  Sex: Female
  Weight: 77 kg

DRUGS (8)
  1. LETROZOLE. [Concomitant]
     Active Substance: LETROZOLE
     Indication: PRODUCT USED FOR UNKNOWN INDICATION
     Route: 048
  2. ZOLEDRONIC ACID [Concomitant]
     Active Substance: ZOLEDRONIC ACID
     Indication: PRODUCT USED FOR UNKNOWN INDICATION
  3. IBRANCE [Concomitant]
     Active Substance: PALBOCICLIB
     Indication: PRODUCT USED FOR UNKNOWN INDICATION
     Dates: start: 20180330
  4. LUCRIN [Suspect]
     Active Substance: LEUPROLIDE ACETATE
     Indication: BREAST CANCER
     Route: 050
     Dates: start: 201712, end: 20180220
  5. OMEPRAZOLE. [Concomitant]
     Active Substance: OMEPRAZOLE
     Indication: PRODUCT USED FOR UNKNOWN INDICATION
     Route: 048
  6. CALCIUM CARBONATE/CHOLECALCIFEROL [Concomitant]
     Active Substance: CALCIUM CARBONATE\CHOLECALCIFEROL
     Indication: PRODUCT USED FOR UNKNOWN INDICATION
     Dosage: 2.5 G/880 IU (1000 MG CA)
     Route: 048
  7. LUCRIN [Suspect]
     Active Substance: LEUPROLIDE ACETATE
     Indication: BREAST CANCER
     Route: 050
     Dates: start: 20180322
  8. SODIUM CHLORIDE. [Concomitant]
     Active Substance: SODIUM CHLORIDE
     Indication: PRODUCT USED FOR UNKNOWN INDICATION

REACTIONS (1)
  - Breast cancer metastatic [Not Recovered/Not Resolved]

NARRATIVE: CASE EVENT DATE: 201803
